FAERS Safety Report 16849877 (Version 1)
Quarter: 2019Q3

REPORT INFORMATION
  Report Type: Report from Study
  Country: None (occurrence: US)
  Receive Date: 20190925
  Receipt Date: 20190925
  Transmission Date: 20191005
  Serious: Yes (Other)
  Sender: FDA-Public Use
  Company Number: US-ABBVIE-19K-163-2701683-00

PATIENT
  Sex: Female

DRUGS (3)
  1. HUMIRA [Suspect]
     Active Substance: ADALIMUMAB
     Indication: RHEUMATOID ARTHRITIS
     Route: 058
     Dates: start: 20180907
  2. IMURAN [Concomitant]
     Active Substance: AZATHIOPRINE
     Indication: PRODUCT USED FOR UNKNOWN INDICATION
  3. METHOTREXATE. [Concomitant]
     Active Substance: METHOTREXATE
     Indication: PRODUCT USED FOR UNKNOWN INDICATION

REACTIONS (9)
  - Loss of personal independence in daily activities [Unknown]
  - Arthralgia [Unknown]
  - Pneumonia [Recovered/Resolved]
  - Joint swelling [Unknown]
  - Impaired self-care [Unknown]
  - Joint stiffness [Unknown]
  - Pulmonary hypertension [Unknown]
  - Gait disturbance [Unknown]
  - Depression [Unknown]

NARRATIVE: CASE EVENT DATE: 2019
